FAERS Safety Report 14383275 (Version 1)
Quarter: 2018Q1

REPORT INFORMATION
  Report Type: Spontaneous
  Country: FR (occurrence: FR)
  Receive Date: 20180115
  Receipt Date: 20180115
  Transmission Date: 20180509
  Serious: Yes (Other)
  Sender: FDA-Public Use
  Company Number: FR-CIPLA LTD.-2018FR00050

PATIENT

DRUGS (1)
  1. ZOLEDRONIC ACID [Suspect]
     Active Substance: ZOLEDRONIC ACID
     Indication: OSTEOPENIA
     Dosage: 1 DF, YEARLY
     Route: 042
     Dates: start: 20131101, end: 20151101

REACTIONS (1)
  - Periodontal destruction [Recovered/Resolved with Sequelae]

NARRATIVE: CASE EVENT DATE: 20161001
